FAERS Safety Report 21490829 (Version 1)
Quarter: 2022Q4

REPORT INFORMATION
  Report Type: Spontaneous
  Country: US (occurrence: None)
  Receive Date: 20221020
  Receipt Date: 20221020
  Transmission Date: 20230113
  Serious: No
  Sender: FDA-Public Use
  Company Number: None

PATIENT
  Age: 63 Year

DRUGS (1)
  1. TREMFYA [Suspect]
     Active Substance: GUSELKUMAB
     Indication: Psoriatic arthropathy
     Dosage: FREQUENCY : AS DIRECTED;?
     Route: 058
     Dates: start: 202210

REACTIONS (4)
  - Device delivery system issue [None]
  - Device leakage [None]
  - Incorrect dose administered by device [None]
  - Product dose omission issue [None]

NARRATIVE: CASE EVENT DATE: 20221018
